FAERS Safety Report 7004703-4 (Version None)
Quarter: 2010Q3

REPORT INFORMATION
  Report Type: 
  Country: None (occurrence: None)
  Receive Date: 20100921
  Receipt Date: 20100916
  Transmission Date: 20110219
  Serious: Yes (Hospitalization)
  Sender: FDA-Public Use
  Company Number: PHHO2010CA11712

PATIENT
  Sex: Female
  Weight: 65.4 kg

DRUGS (3)
  1. CERTICAN [Suspect]
     Indication: HEART TRANSPLANT
     Dosage: 1.25 MG DAILY
     Route: 048
     Dates: start: 20090605
  2. NEORAL [Concomitant]
     Indication: HEART TRANSPLANT
  3. STEROIDS NOS [Concomitant]

REACTIONS (1)
  - HYPERTHERMIA [None]
